FAERS Safety Report 11993087 (Version 1)
Quarter: 2016Q1

REPORT INFORMATION
  Report Type: Spontaneous
  Country: US (occurrence: US)
  Receive Date: 20160203
  Receipt Date: 20160203
  Transmission Date: 20160526
  Serious: Yes (Other)
  Sender: FDA-Public Use
  Company Number: US-ASTRAZENECA-2016SE08850

PATIENT
  Age: 27253 Day
  Sex: Male
  Weight: 127 kg

DRUGS (8)
  1. VITAMIN C [Concomitant]
     Active Substance: ASCORBIC ACID
  2. ASPIRIN. [Concomitant]
     Active Substance: ASPIRIN
     Indication: ADJUVANT THERAPY
     Route: 048
  3. POTASSIUM [Concomitant]
     Active Substance: POTASSIUM
  4. BRILINTA [Suspect]
     Active Substance: TICAGRELOR
     Indication: ACUTE CORONARY SYNDROME
     Route: 048
     Dates: start: 201510
  5. GARLIC. [Concomitant]
     Active Substance: GARLIC
  6. VITAMIN B NOS [Concomitant]
     Active Substance: VITAMIN B
  7. NIACIN. [Concomitant]
     Active Substance: NIACIN
  8. BRILINTA [Suspect]
     Active Substance: TICAGRELOR
     Indication: MYOCARDIAL INFARCTION
     Route: 048
     Dates: start: 201510

REACTIONS (1)
  - Epistaxis [Not Recovered/Not Resolved]

NARRATIVE: CASE EVENT DATE: 20160126
